FAERS Safety Report 24016534 (Version 2)
Quarter: 2024Q3

REPORT INFORMATION
  Report Type: Spontaneous
  Country: US (occurrence: US)
  Receive Date: 20240626
  Receipt Date: 20240822
  Transmission Date: 20241016
  Serious: No
  Sender: SANDOZ
  Company Number: US-SANDOZ-SDZ2024US060819

PATIENT
  Sex: Female

DRUGS (1)
  1. BIMATOPROST [Suspect]
     Active Substance: BIMATOPROST
     Indication: Product used for unknown indication
     Dosage: 1 TIME PER NIGHT,T 0.03% 5ML LDP V2 US
     Route: 065

REACTIONS (2)
  - Lacrimation decreased [Unknown]
  - Hordeolum [Unknown]
